FAERS Safety Report 11522579 (Version 1)
Quarter: 2015Q3

REPORT INFORMATION
  Report Type: Spontaneous
  Country: US (occurrence: US)
  Receive Date: 20150903
  Receipt Date: 20150903
  Transmission Date: 20151125
  Serious: Yes (Other)
  Sender: FDA-Public Use
  Company Number: US-ELI_LILLY_AND_COMPANY-US201301008046

PATIENT
  Age: 77 Year
  Sex: Male

DRUGS (2)
  1. CELEBREX [Concomitant]
     Active Substance: CELECOXIB
  2. CYMBALTA [Suspect]
     Active Substance: DULOXETINE HYDROCHLORIDE
     Indication: PAIN
     Dosage: 20 MG, EACH EVENING

REACTIONS (5)
  - Glaucoma [Unknown]
  - Urinary tract disorder [Unknown]
  - Feeling abnormal [Unknown]
  - Prostatic disorder [Unknown]
  - Off label use [Unknown]
